FAERS Safety Report 16509490 (Version 1)
Quarter: 2019Q3

REPORT INFORMATION
  Report Type: Spontaneous
  Country: US (occurrence: US)
  Receive Date: 20190701
  Receipt Date: 20190701
  Transmission Date: 20191004
  Serious: Yes (Death, Disabling)
  Sender: FDA-Public Use
  Company Number: None

PATIENT
  Age: 63 Year
  Sex: Male
  Weight: 60.75 kg

DRUGS (1)
  1. AMIODARONE [Suspect]
     Active Substance: AMIODARONE
     Indication: ARRHYTHMIA
     Dosage: ?          QUANTITY:60 TABLET(S);?
     Route: 048
     Dates: start: 20180110, end: 20180210

REACTIONS (5)
  - Drug ineffective [None]
  - Optic ischaemic neuropathy [None]
  - Vision blurred [None]
  - Disease progression [None]
  - Blindness [None]

NARRATIVE: CASE EVENT DATE: 20180307
